FAERS Safety Report 18649307 (Version 1)
Quarter: 2020Q4

REPORT INFORMATION
  Report Type: Spontaneous
  Country: US (occurrence: US)
  Receive Date: 20201222
  Receipt Date: 20201222
  Transmission Date: 20210114
  Serious: No
  Sender: FDA-Public Use
  Company Number: US-ASTRAZENECA-2020SF57247

PATIENT
  Sex: Male
  Weight: 86.2 kg

DRUGS (3)
  1. BREZTRI AEROSPHERE [Suspect]
     Active Substance: BUDESONIDE\FORMOTEROL\GLYCOPYRRONIUM
     Indication: CHRONIC OBSTRUCTIVE PULMONARY DISEASE
     Dosage: 160MCGS/9.0 MCGS/4.8 MCGS
     Route: 055
     Dates: start: 202011
  2. ALBUTEROL. [Concomitant]
     Active Substance: ALBUTEROL
     Route: 055
     Dates: start: 2019
  3. BEVESPI AEROSPHERE [Suspect]
     Active Substance: FORMOTEROL FUMARATE\GLYCOPYRROLATE
     Indication: CHRONIC OBSTRUCTIVE PULMONARY DISEASE
     Dosage: 9 MCGS/4.8 MCGS
     Route: 055
     Dates: start: 201911

REACTIONS (6)
  - Product dose omission issue [Unknown]
  - Wrong technique in product usage process [Unknown]
  - Dyspnoea [Unknown]
  - Product prescribing error [Unknown]
  - Drug delivery system issue [Unknown]
  - Intentional device misuse [Unknown]
